FAERS Safety Report 9858131 (Version 1)
Quarter: 2014Q1

REPORT INFORMATION
  Report Type: Spontaneous
  Country: US (occurrence: US)
  Receive Date: 20140131
  Receipt Date: 20140131
  Transmission Date: 20141002
  Serious: No
  Sender: FDA-Public Use
  Company Number: US-TEVA-458594USA

PATIENT
  Age: 53 Year
  Sex: Female
  Weight: 99.88 kg

DRUGS (3)
  1. PROAIR HFA [Suspect]
     Indication: BRONCHITIS
     Dates: start: 20130122
  2. PREDNISONE [Concomitant]
     Indication: RESPIRATORY DISORDER
     Dosage: 2 TABS DAILY X 3 DAYS THEN 1 TAB DAILY X 3 DAY
     Route: 048
     Dates: start: 20140122
  3. AUGMENTIN [Concomitant]
     Indication: PROPHYLAXIS
     Dosage: 875/125 MG TWICE A DAY
     Route: 048

REACTIONS (4)
  - Cough [Recovering/Resolving]
  - Wheezing [Recovered/Resolved]
  - Dyspnoea [Recovered/Resolved]
  - Dyspnoea [Recovered/Resolved]
